FAERS Safety Report 13703256 (Version 1)
Quarter: 2017Q2

REPORT INFORMATION
  Report Type: Spontaneous
  Country: ES (occurrence: ES)
  Receive Date: 20170629
  Receipt Date: 20170629
  Transmission Date: 20170830
  Serious: Yes (Other)
  Sender: FDA-Public Use
  Company Number: ES-ALLERGAN-CIP02002291

PATIENT
  Age: 36 Year
  Sex: Female

DRUGS (1)
  1. ASACOL [Suspect]
     Active Substance: MESALAMINE
     Indication: CROHN^S DISEASE
     Dosage: 1500 MG DAILY
     Route: 048
     Dates: start: 199908, end: 200105

REACTIONS (5)
  - Nephrogenic diabetes insipidus [Recovering/Resolving]
  - Polyuria [Not Recovered/Not Resolved]
  - Tubulointerstitial nephritis [Recovering/Resolving]
  - Polydipsia [Not Recovered/Not Resolved]
  - Off label use [Unknown]

NARRATIVE: CASE EVENT DATE: 200012
